FAERS Safety Report 6967849-2 (Version None)
Quarter: 2010Q3

REPORT INFORMATION
  Report Type: 
  Country: None (occurrence: None)
  Receive Date: 20100907
  Receipt Date: 20100813
  Transmission Date: 20110219
  Serious: No
  Sender: FDA-Public Use
  Company Number: A0848687A

PATIENT
  Age: 36 Year
  Sex: Female
  Weight: 63.6 kg

DRUGS (12)
  1. REQUIP [Suspect]
     Indication: RESTLESS LEGS SYNDROME
     Dosage: 2MG PER DAY
     Route: 048
     Dates: start: 20100213, end: 20100222
  2. ROPINIROLE [Suspect]
     Indication: PRODUCT USED FOR UNKNOWN INDICATION
     Route: 065
  3. SINGULAIR [Concomitant]
  4. FEXOFENADINE HCL [Concomitant]
  5. SYMBICORT [Concomitant]
  6. CYMBALTA [Concomitant]
  7. LAMICTAL [Concomitant]
  8. NUVIGIL [Concomitant]
  9. RITALIN [Concomitant]
  10. FLECAINIDE ACETATE [Concomitant]
  11. FAMCICLOVIR [Concomitant]
  12. NORETHINDRONE AND ETHINYL ESTRADIOL [Concomitant]

REACTIONS (5)
  - DYSKINESIA [None]
  - EATING DISORDER [None]
  - INSOMNIA [None]
  - OBSESSIVE THOUGHTS [None]
  - THINKING ABNORMAL [None]
